FAERS Safety Report 4451488-1 (Version None)
Quarter: 2004Q3

REPORT INFORMATION
  Report Type: 
  Country: None (occurrence: None)
  Receive Date: 20040915
  Receipt Date: 20040816
  Transmission Date: 20050211
  Serious: No
  Sender: FDA-Public Use
  Company Number: J200403528

PATIENT
  Age: 87 Year
  Sex: Female

DRUGS (4)
  1. (MYSLEE )ZOLPIDEM TABLET 10 MG [Suspect]
     Indication: INSOMNIA
     Dosage: 10 MG, PO
     Route: 048
     Dates: start: 20040803, end: 20040803
  2. ALFASULY (ALFACALCIDOL) [Concomitant]
  3. GLAKAY (MENATRENONE) [Concomitant]
  4. LIPITOR [Concomitant]

REACTIONS (2)
  - APNOEA [None]
  - CHEYNE-STOKES RESPIRATION [None]
